FAERS Safety Report 25413796 (Version 1)
Quarter: 2025Q2

REPORT INFORMATION
  Report Type: Spontaneous
  Country: CN (occurrence: CN)
  Receive Date: 20250609
  Receipt Date: 20250609
  Transmission Date: 20250716
  Serious: Yes (Life-Threatening)
  Sender: ELI LILLY AND COMPANY
  Company Number: CN-ELI_LILLY_AND_COMPANY-CN202506004661

PATIENT
  Age: 57 Year
  Sex: Female
  Weight: 67 kg

DRUGS (2)
  1. ABEMACICLIB [Suspect]
     Active Substance: ABEMACICLIB
     Indication: Targeted cancer therapy
     Dosage: 150 MG, BID
     Route: 048
     Dates: start: 20250126, end: 20250521
  2. FULVESTRANT [Concomitant]
     Active Substance: FULVESTRANT
     Indication: Neoplasm
     Route: 030
     Dates: start: 20250126, end: 20250430

REACTIONS (1)
  - Myelosuppression [Recovering/Resolving]

NARRATIVE: CASE EVENT DATE: 20250522
